FAERS Safety Report 20852908 (Version 1)
Quarter: 2022Q2

REPORT INFORMATION
  Report Type: Spontaneous
  Country: US (occurrence: US)
  Receive Date: 20220520
  Receipt Date: 20220520
  Transmission Date: 20220721
  Serious: Yes (Other)
  Sender: FDA-Public Use
  Company Number: US-drreddys-LIT/USA/22/0150139

PATIENT
  Sex: Female

DRUGS (10)
  1. GEMCITABINE [Suspect]
     Active Substance: GEMCITABINE
     Indication: Invasive breast carcinoma
  2. CAPECITABINE [Suspect]
     Active Substance: CAPECITABINE
     Indication: Invasive breast carcinoma
  3. FULVESTRANT [Suspect]
     Active Substance: FULVESTRANT
     Indication: Invasive breast carcinoma
  4. LETROZOLE [Suspect]
     Active Substance: LETROZOLE
     Indication: Invasive breast carcinoma
     Route: 048
  5. EXEMESTANE [Suspect]
     Active Substance: EXEMESTANE
     Indication: Invasive breast carcinoma
  6. ALPELISIB [Suspect]
     Active Substance: ALPELISIB
     Indication: Invasive breast carcinoma
  7. EVEROLIMUS [Suspect]
     Active Substance: EVEROLIMUS
     Indication: Invasive breast carcinoma
  8. LAPATINIB [Suspect]
     Active Substance: LAPATINIB
     Indication: Invasive breast carcinoma
  9. LEUPROLIDE ACETATE [Suspect]
     Active Substance: LEUPROLIDE ACETATE
     Indication: Invasive breast carcinoma
  10. PALBOCICLIB [Suspect]
     Active Substance: PALBOCICLIB
     Indication: Invasive breast carcinoma

REACTIONS (2)
  - Disease progression [Unknown]
  - Drug ineffective [Unknown]
